FAERS Safety Report 9702043 (Version 2)
Quarter: 2014Q2

REPORT INFORMATION
  Report Type: Report from Study
  Country: CA (occurrence: CA)
  Receive Date: 20131121
  Receipt Date: 20140428
  Transmission Date: 20141212
  Serious: Yes (Hospitalization, Other)
  Sender: FDA-Public Use
  Company Number: CA-ABBVIE-13P-028-1170028-00

PATIENT
  Age: 49 Year
  Sex: Female
  Weight: 49.49 kg

DRUGS (4)
  1. HUMIRA [Suspect]
     Indication: CROHN^S DISEASE
     Route: 058
     Dates: start: 20130730
  2. METHOTREXATE [Concomitant]
     Indication: CROHN^S DISEASE
     Route: 058
     Dates: start: 201311
  3. LOVENOX [Concomitant]
     Indication: CROHN^S DISEASE
     Route: 058
  4. PERCOCET [Concomitant]
     Indication: PAIN
     Dosage: 1 TO 2 TABLETS 1 EVERY 4 HOURS AS NEEDED
     Route: 048

REACTIONS (11)
  - Malnutrition [Recovering/Resolving]
  - Dehydration [Recovering/Resolving]
  - Asthenia [Not Recovered/Not Resolved]
  - Abdominal pain [Not Recovered/Not Resolved]
  - Abdominal pain [Not Recovered/Not Resolved]
  - Hypophagia [Not Recovered/Not Resolved]
  - Food intolerance [Unknown]
  - Crohn^s disease [Unknown]
  - Hypomagnesaemia [Unknown]
  - Hypokalaemia [Unknown]
  - Diarrhoea [Unknown]
